FAERS Safety Report 18516030 (Version 1)
Quarter: 2020Q4

REPORT INFORMATION
  Report Type: Spontaneous
  Country: US (occurrence: US)
  Receive Date: 20201117
  Receipt Date: 20201117
  Transmission Date: 20210114
  Serious: Yes (Disabling)
  Sender: FDA-Public Use
  Company Number: None

PATIENT
  Age: 35 Year
  Sex: Female
  Weight: 60.78 kg

DRUGS (2)
  1. KYLEENA [Suspect]
     Active Substance: LEVONORGESTREL
     Dates: start: 20180504, end: 20200108
  2. WOMENS MULTIVITAMIN [Concomitant]

REACTIONS (5)
  - Anxiety [None]
  - Panic attack [None]
  - Alopecia [None]
  - Abdominal pain [None]
  - Palpitations [None]

NARRATIVE: CASE EVENT DATE: 20191101
